FAERS Safety Report 6156881-7 (Version None)
Quarter: 2009Q2

REPORT INFORMATION
  Report Type: 
  Country: None (occurrence: None)
  Receive Date: 20090413
  Receipt Date: 20090223
  Transmission Date: 20091009
  Serious: No
  Sender: FDA-Public Use
  Company Number: 2009BM000043

PATIENT
  Age: 13 Year
  Sex: Male
  Weight: 40.8237 kg

DRUGS (1)
  1. KUVAN [Suspect]
     Indication: PHENYLKETONURIA
     Dosage: 800 MG;QD;PO
     Route: 048
     Dates: start: 20071201, end: 20081201

REACTIONS (7)
  - DRUG INEFFECTIVE [None]
  - EAR PAIN [None]
  - EMOTIONAL DISTRESS [None]
  - GASTRIC DISORDER [None]
  - HEADACHE [None]
  - NASOPHARYNGITIS [None]
  - VIRAL INFECTION [None]
